FAERS Safety Report 4630124-5 (Version None)
Quarter: 2005Q2

REPORT INFORMATION
  Report Type: 
  Country: None (occurrence: None)
  Receive Date: 20050408
  Receipt Date: 20050325
  Transmission Date: 20051028
  Serious: Yes (Hospitalization)
  Sender: FDA-Public Use
  Company Number: FR-GLAXOSMITHKLINE-B0375975A

PATIENT
  Age: 46 Year
  Sex: Male
  Weight: 64 kg

DRUGS (9)
  1. COMBIVIR [Suspect]
     Indication: HIV INFECTION
     Dosage: 1TAB TWICE PER DAY
     Route: 048
     Dates: start: 20030101
  2. VIDEX [Suspect]
     Indication: HIV INFECTION
     Dosage: 400MG PER DAY
     Route: 048
     Dates: start: 20030101
  3. VIREAD [Suspect]
     Indication: HIV INFECTION
     Dosage: 1TAB PER DAY
     Route: 048
     Dates: start: 20030101, end: 20040504
  4. KALETRA [Concomitant]
     Indication: HIV INFECTION
     Dosage: 3CAP TWICE PER DAY
     Route: 048
     Dates: start: 20030101
  5. BACTRIM [Concomitant]
     Dosage: 1TAB PER DAY
     Route: 048
  6. AZADOSE [Concomitant]
     Route: 048
  7. TRIFLUCAN [Concomitant]
     Route: 048
  8. IMODIUM [Concomitant]
     Route: 048
  9. STILNOX [Concomitant]
     Route: 048

REACTIONS (6)
  - GLYCOSURIA [None]
  - HYPERPHOSPHATURIA [None]
  - HYPOPHOSPHATAEMIA [None]
  - LEUKOPENIA [None]
  - PROTEINURIA [None]
  - RENAL TUBULAR DISORDER [None]
